FAERS Safety Report 8757051 (Version 1)
Quarter: 2012Q4

REPORT INFORMATION
  Report Type: 
  Country: IE (occurrence: IE)
  Receive Date: 20120828
  Receipt Date: 20120828
  Transmission Date: 20130627
  Serious: Yes (Other)
  Sender: FDA-Public Use
  Company Number: IE-PFIZER INC-2012208150

PATIENT
  Age: 60 Year
  Sex: Male

DRUGS (6)
  1. LIPITOR [Suspect]
     Indication: HYPERCHOLESTEROLAEMIA
     Dosage: 20 mg, UNK
     Route: 048
  2. NU-SEALS [Concomitant]
     Dosage: 75 mg, UNK
     Route: 048
  3. CARDICOR [Concomitant]
     Dosage: 2.5 mg, UNK
     Route: 048
  4. IMDUR [Concomitant]
     Dosage: 60 mg, UNK
     Route: 048
  5. PANTOFLUX [Concomitant]
     Dosage: 40 mg, UNK
     Route: 048
  6. RANEXA [Concomitant]
     Dosage: 375 mg, UNK
     Route: 048

REACTIONS (1)
  - Memory impairment [Unknown]
